FAERS Safety Report 6891721-X (Version None)
Quarter: 2010Q3

REPORT INFORMATION
  Report Type: 
  Country: None (occurrence: None)
  Receive Date: 20100731
  Receipt Date: 20070924
  Transmission Date: 20110219
  Serious: No
  Sender: FDA-Public Use
  Company Number: US-PFIZER INC-2007080216

PATIENT
  Sex: Male
  Weight: 84 kg

DRUGS (5)
  1. CAVERJECT [Suspect]
     Indication: ERECTILE DYSFUNCTION
  2. ADVAIR DISKUS 100/50 [Concomitant]
  3. MONTELUKAST SODIUM [Concomitant]
  4. IBUPROFEN TABLETS [Concomitant]
  5. VICODIN [Concomitant]

REACTIONS (1)
  - DRUG INEFFECTIVE [None]
